FAERS Safety Report 4898395-8 (Version None)
Quarter: 2006Q1

REPORT INFORMATION
  Report Type: 
  Country: None (occurrence: None)
  Receive Date: 20060131
  Receipt Date: 20060131
  Transmission Date: 20060701
  Serious: Yes (Other)
  Sender: FDA-Public Use
  Company Number: None

PATIENT
  Sex: Female

DRUGS (2)
  1. LAMISIL [Suspect]
     Indication: ONYCHOMYCOSIS
     Dosage: 250 MG 1 A DAY ORAL
     Route: 048
     Dates: start: 20051101, end: 20051201
  2. LIPITOR [Suspect]
     Indication: BLOOD TRIGLYCERIDES
     Dosage: 20 MG 1 A DAY ORAL (LONG-TERM)
     Route: 048

REACTIONS (4)
  - BONE PAIN [None]
  - DRUG INTERACTION [None]
  - MUSCULAR WEAKNESS [None]
  - MYALGIA [None]
